FAERS Safety Report 22589401 (Version 7)
Quarter: 2023Q4

REPORT INFORMATION
  Report Type: Report from Study
  Country: US (occurrence: US)
  Receive Date: 20230612
  Receipt Date: 20231129
  Transmission Date: 20240109
  Serious: No
  Sender: FDA-Public Use
  Company Number: US-002147023-NVSC2023US133746

PATIENT
  Age: 50 Year
  Sex: Female

DRUGS (1)
  1. KESIMPTA [Suspect]
     Active Substance: OFATUMUMAB
     Indication: Relapsing multiple sclerosis
     Dosage: 20 MG, QMO
     Route: 058
     Dates: start: 20230213

REACTIONS (5)
  - Adverse drug reaction [Unknown]
  - Diarrhoea [Unknown]
  - Temperature intolerance [Unknown]
  - Headache [Unknown]
  - Product preparation error [Unknown]

NARRATIVE: CASE EVENT DATE: 20230221
